FAERS Safety Report 5103067-0 (Version None)
Quarter: 2006Q3

REPORT INFORMATION
  Report Type: 
  Country: None (occurrence: None)
  Receive Date: 20060907
  Receipt Date: 20060825
  Transmission Date: 20061208
  Serious: Yes (Hospitalization, Other)
  Sender: FDA-Public Use
  Company Number: A-CH2006-12971

PATIENT
  Age: 52 Year
  Sex: Female
  Weight: 52 kg

DRUGS (11)
  1. TRACLEER [Suspect]
     Indication: PRINZMETAL ANGINA
     Dosage: 62.5 MG, BID, ORAL
     Route: 048
     Dates: start: 20040901, end: 20060814
  2. PANTOPRAZOLE SODIUM [Concomitant]
  3. LEVOTHYROXINE SODIUM [Concomitant]
  4. CLONIDINE [Concomitant]
  5. QUINAPRIL HCL [Concomitant]
  6. ATORVASTATIN CALCIUM [Concomitant]
  7. ASPIRIN [Concomitant]
  8. NICORANDIL (NICORANDIL) [Concomitant]
  9. ESTRADIOL [Concomitant]
  10. ISOSORBIDE DINITRATE [Concomitant]
  11. ALENDRONIC ACID (ALENDRONIC ACID) [Concomitant]

REACTIONS (5)
  - ALANINE AMINOTRANSFERASE INCREASED [None]
  - ASPARTATE AMINOTRANSFERASE INCREASED [None]
  - BLOOD ALKALINE PHOSPHATASE INCREASED [None]
  - GAMMA-GLUTAMYLTRANSFERASE INCREASED [None]
  - PRURITUS [None]
